FAERS Safety Report 8924284 (Version 2)
Quarter: 2012Q4

REPORT INFORMATION
  Report Type: 
  Country: IT (occurrence: IT)
  Receive Date: 20121126
  Receipt Date: 20121207
  Transmission Date: 20130627
  Serious: Yes (Hospitalization)
  Sender: FDA-Public Use
  Company Number: IT-GLAXOSMITHKLINE-B0841204A

PATIENT
  Sex: Male

DRUGS (2)
  1. LAMICTAL [Suspect]
     Indication: EPILEPSY
     Route: 064
  2. FOLIC ACID [Concomitant]

REACTIONS (9)
  - Tachycardia foetal [Unknown]
  - Cardiac septal defect [Unknown]
  - Tricuspid valve incompetence [Unknown]
  - Arrhythmia [Unknown]
  - Heart rate irregular [Recovering/Resolving]
  - Respiratory disorder [Unknown]
  - Dyspnoea [Recovering/Resolving]
  - Dilatation ventricular [Unknown]
  - Foetal exposure during pregnancy [Unknown]
